FAERS Safety Report 23230607 (Version 1)
Quarter: 2023Q4

REPORT INFORMATION
  Report Type: Spontaneous
  Country: US (occurrence: None)
  Receive Date: 20231124
  Receipt Date: 20231124
  Transmission Date: 20240110
  Serious: Yes (Death)
  Sender: FDA-Public Use
  Company Number: None

PATIENT
  Age: 96 Year
  Sex: Male

DRUGS (1)
  1. PIRFENIDONE [Suspect]
     Active Substance: PIRFENIDONE
     Indication: Interstitial lung disease
     Dosage: 267MG TID ORAL?
     Route: 048
     Dates: start: 20221223, end: 20230723

REACTIONS (7)
  - Tachypnoea [None]
  - Fatigue [None]
  - Productive cough [None]
  - Lethargy [None]
  - Delirium [None]
  - Heart rate increased [None]
  - Blood pressure systolic decreased [None]

NARRATIVE: CASE EVENT DATE: 20230723
